FAERS Safety Report 5049693-9 (Version None)
Quarter: 2006Q3

REPORT INFORMATION
  Report Type: 
  Country: None (occurrence: None)
  Receive Date: 20060712
  Receipt Date: 20060228
  Transmission Date: 20061208
  Serious: Yes (Hospitalization)
  Sender: FDA-Public Use
  Company Number: BE-BOEHRINGER INGELHEIM PHARMACEUTICALS, INC.-2006-BL-00076BL

PATIENT
  Sex: Female
  Weight: 59 kg

DRUGS (4)
  1. MIRAPEXIN [Suspect]
     Indication: PARKINSON'S DISEASE
     Route: 048
     Dates: start: 20030701
  2. LASIX [Concomitant]
     Route: 048
  3. SELOZOK [Concomitant]
     Route: 048
  4. CORUNO [Concomitant]
     Route: 048

REACTIONS (3)
  - ANXIETY [None]
  - DELUSION [None]
  - HALLUCINATION [None]
